FAERS Safety Report 7281354-8 (Version None)
Quarter: 2011Q1

REPORT INFORMATION
  Report Type: 
  Country: None (occurrence: None)
  Receive Date: 20110128
  Receipt Date: 20110120
  Transmission Date: 20110831
  Serious: Yes (Death)
  Sender: FDA-Public Use
  Company Number: 1000018326

PATIENT
  Sex: Female

DRUGS (10)
  1. LISINOPRIL [Suspect]
  2. BENZODIAZEPINE (BENZODIAZEPINE) [Suspect]
  3. DILTIAZEM HCL [Suspect]
  4. VENLAFAXINE [Suspect]
  5. CHLORDIAZEPOXIDE [Suspect]
  6. SULFONUREA (SULFONUREA) [Suspect]
  7. DOXAZOSIN MESYLATE [Suspect]
  8. HYDROCHLOROTHIAZIDE [Suspect]
  9. LEVOTHROID [Suspect]
  10. SIMVASTATIN [Suspect]

REACTIONS (3)
  - COMPLETED SUICIDE [None]
  - MULTIPLE DRUG OVERDOSE INTENTIONAL [None]
  - CARDIO-RESPIRATORY ARREST [None]
